FAERS Safety Report 11546838 (Version 2)
Quarter: 2015Q4

REPORT INFORMATION
  Report Type: Spontaneous
  Country: US (occurrence: US)
  Receive Date: 20150924
  Receipt Date: 20151217
  Transmission Date: 20160304
  Serious: No
  Sender: FDA-Public Use
  Company Number: US-PFIZER INC-2015320437

PATIENT
  Age: 78 Year
  Sex: Male
  Weight: 86 kg

DRUGS (1)
  1. METRONIDAZOLE. [Suspect]
     Active Substance: METRONIDAZOLE
     Indication: GASTROENTERITIS VIRAL
     Dosage: 500 MG, 3X/DAY (EVERY 8 HOURS FOR 14 DAYS)
     Route: 048
     Dates: start: 201509, end: 20150919

REACTIONS (4)
  - Asthenia [Recovered/Resolved]
  - Drug ineffective for unapproved indication [Unknown]
  - Expired product administered [Unknown]
  - Intentional product use issue [Unknown]
